FAERS Safety Report 23877278 (Version 1)
Quarter: 2024Q2

REPORT INFORMATION
  Report Type: Spontaneous
  Country: AU (occurrence: AU)
  Receive Date: 20240521
  Receipt Date: 20240521
  Transmission Date: 20240716
  Serious: Yes (Other)
  Sender: FDA-Public Use
  Company Number: AU-BEH-2024172355

PATIENT
  Age: 57 Year
  Sex: Female
  Weight: 82 kg

DRUGS (11)
  1. HUMAN IMMUNOGLOBULIN G [Suspect]
     Active Substance: HUMAN IMMUNOGLOBULIN G
     Indication: Infection
     Dosage: UNK
     Route: 042
     Dates: start: 20240503, end: 20240503
  2. HUMAN IMMUNOGLOBULIN G [Suspect]
     Active Substance: HUMAN IMMUNOGLOBULIN G
     Indication: Hypogammaglobulinaemia
  3. RITUXIMAB [Concomitant]
     Active Substance: RITUXIMAB
     Indication: Rheumatoid arthritis
  4. RITUXIMAB [Concomitant]
     Active Substance: RITUXIMAB
     Indication: Rheumatoid arthritis
  5. REMDESIVIR [Concomitant]
     Active Substance: REMDESIVIR
     Indication: COVID-19
  6. REMDESIVIR [Concomitant]
     Active Substance: REMDESIVIR
     Indication: COVID-19
  7. INSULIN NOS [Concomitant]
     Active Substance: INSULIN NOS
     Indication: Steroid diabetes
  8. INSULIN NOS [Concomitant]
     Active Substance: INSULIN NOS
     Indication: Steroid diabetes
  9. KCL [Concomitant]
     Active Substance: POTASSIUM CHLORIDE
  10. SODIUM CHLORIDE [Concomitant]
     Active Substance: SODIUM CHLORIDE
     Dosage: 100 UNK
  11. POTASSIUM [Concomitant]
     Active Substance: POTASSIUM

REACTIONS (3)
  - Haemoptysis [Recovered/Resolved]
  - Hypertension [Recovered/Resolved]
  - Oxygen saturation decreased [Recovered/Resolved]

NARRATIVE: CASE EVENT DATE: 20240503
